FAERS Safety Report 4689132-0 (Version None)
Quarter: 2005Q2

REPORT INFORMATION
  Report Type: 
  Country: None (occurrence: None)
  Receive Date: 20050613
  Receipt Date: 20050601
  Transmission Date: 20051028
  Serious: Yes (Other)
  Sender: FDA-Public Use
  Company Number: 2005AC00852

PATIENT
  Age: 57 Year
  Sex: Female
  Weight: 83 kg

DRUGS (6)
  1. VISACOR [Suspect]
     Indication: BLOOD CHOLESTEROL INCREASED
     Route: 048
     Dates: start: 20050101, end: 20050101
  2. AMITRIPTYLIN CHLORIDRATE [Concomitant]
     Route: 048
  3. LORAZEPAM [Concomitant]
     Route: 048
  4. ACECLOFENAC [Concomitant]
  5. VACCINIUM MYRTILLUS ANTACIANOSIDES [Concomitant]
     Route: 048
  6. BISACODYL [Concomitant]

REACTIONS (2)
  - DIZZINESS [None]
  - FALL [None]
